FAERS Safety Report 25797517 (Version 1)
Quarter: 2025Q3

REPORT INFORMATION
  Report Type: Spontaneous
  Country: US (occurrence: US)
  Receive Date: 20250912
  Receipt Date: 20250912
  Transmission Date: 20251021
  Serious: Yes (Other)
  Sender: FRESENIUS KABI
  Company Number: US-FreseniusKabi-FK202512295

PATIENT
  Sex: Female
  Weight: 113.64 kg

DRUGS (2)
  1. TYENNE [Suspect]
     Active Substance: TOCILIZUMAB-AAZG
     Indication: Product used for unknown indication
  2. KEVZARA [Suspect]
     Active Substance: SARILUMAB
     Indication: Illness
     Dosage: FOA-SOLUTION FOR INJECTION  ?200 MG/1.14ML?PRE-FILLED SYRINGE
     Route: 058

REACTIONS (15)
  - Melaena [Unknown]
  - Fatigue [Unknown]
  - Headache [Unknown]
  - Abdominal pain upper [Unknown]
  - Nasal congestion [Unknown]
  - Cough [Unknown]
  - Tinnitus [Unknown]
  - Pollakiuria [Unknown]
  - Oropharyngeal pain [Unknown]
  - Dry mouth [Unknown]
  - Dry eye [Unknown]
  - Breath odour [Unknown]
  - Feeling hot [Unknown]
  - Hyperhidrosis [Unknown]
  - Pruritus [Unknown]
